FAERS Safety Report 10377852 (Version 1)
Quarter: 2014Q3

REPORT INFORMATION
  Report Type: Spontaneous
  Country: US (occurrence: None)
  Receive Date: 20140807
  Receipt Date: 20140807
  Transmission Date: 20150326
  Serious: Yes (Other)
  Sender: FDA-Public Use
  Company Number: 2014PRN00016

PATIENT
  Sex: Female

DRUGS (4)
  1. BENAZEPRIL HCL [Suspect]
     Active Substance: BENAZEPRIL HYDROCHLORIDE
  2. AMLODIPINE [Concomitant]
     Active Substance: AMLODIPINE BESYLATE
  3. BABY ASPIRIN 81MG [Concomitant]
  4. COQ10 [Concomitant]
     Active Substance: UBIDECARENONE

REACTIONS (6)
  - Productive cough [None]
  - Heart rate decreased [None]
  - Anaemia [None]
  - Muscular weakness [None]
  - Myocardial infarction [None]
  - Visual impairment [None]
